FAERS Safety Report 6822417-8 (Version None)
Quarter: 2010Q3

REPORT INFORMATION
  Report Type: 
  Country: None (occurrence: None)
  Receive Date: 20100708
  Receipt Date: 20100705
  Transmission Date: 20110219
  Serious: Yes (Death, Other)
  Sender: FDA-Public Use
  Company Number: PHHY2010JP44016

PATIENT
  Age: 77 Year
  Sex: Male

DRUGS (9)
  1. VOLTAREN [Suspect]
     Dosage: 50 MG DAILY
     Route: 054
     Dates: start: 20090601
  2. VOLTAREN [Suspect]
     Dosage: 25 MG DAILY
     Route: 054
  3. LENDORMIN [Concomitant]
     Dosage: UNK
     Route: 048
  4. GASCON [Concomitant]
     Dosage: UNK
     Route: 048
  5. PARIET [Concomitant]
     Dosage: UNK
     Route: 048
  6. MINOCYCLINE HYDROCHLORIDE [Concomitant]
     Dosage: UNK
     Route: 048
  7. SODIUM ALGINATE [Concomitant]
     Dosage: UNK
     Route: 048
  8. ALFAROL [Concomitant]
     Dosage: UNK
     Route: 048
  9. SODIUM PICOSULFATE [Concomitant]
     Dosage: UNK
     Route: 048

REACTIONS (7)
  - ABDOMINAL DISTENSION [None]
  - ASCITES [None]
  - HAEMATOCHEZIA [None]
  - HAEMORRHOIDS [None]
  - INTESTINAL HAEMORRHAGE [None]
  - INTESTINAL OBSTRUCTION [None]
  - PAIN [None]
